FAERS Safety Report 10840165 (Version 1)
Quarter: 2015Q1

REPORT INFORMATION
  Report Type: Report from Study
  Country: US (occurrence: US)
  Receive Date: 20150220
  Receipt Date: 20150220
  Transmission Date: 20150721
  Serious: No
  Sender: FDA-Public Use
  Company Number: US-ABBVIE-14P-163-1247735-00

PATIENT
  Age: 30 Year
  Sex: Female
  Weight: 49.94 kg

DRUGS (3)
  1. ASACOL [Concomitant]
     Active Substance: MESALAMINE
     Indication: COLITIS ULCERATIVE
  2. HUMIRA [Suspect]
     Active Substance: ADALIMUMAB
     Indication: COLITIS ULCERATIVE
     Dates: start: 20140612, end: 20140612
  3. HUMIRA [Suspect]
     Active Substance: ADALIMUMAB

REACTIONS (3)
  - Syncope [Recovered/Resolved]
  - Dizziness [Recovered/Resolved]
  - Anxiety [Unknown]

NARRATIVE: CASE EVENT DATE: 20140612
